FAERS Safety Report 5195829-9 (Version None)
Quarter: 2006Q4

REPORT INFORMATION
  Report Type: 
  Country: None (occurrence: None)
  Receive Date: 20061227
  Receipt Date: 20061227
  Transmission Date: 20070319
  Serious: Yes (Hospitalization)
  Sender: FDA-Public Use
  Company Number: None

PATIENT
  Sex: Female
  Weight: 78.2 kg

DRUGS (3)
  1. METHOTREXATE [Suspect]
     Indication: BONE SARCOMA
     Dosage: 20 GRAMS OVER 4 HRS X1 IV
     Route: 042
     Dates: start: 20061208
  2. METHOTREXATE [Suspect]
     Indication: BONE SARCOMA
     Dates: start: 20061215
  3. METHOTREXATE [Suspect]
     Dates: start: 20061215

REACTIONS (4)
  - EPISTAXIS [None]
  - GRAND MAL CONVULSION [None]
  - MOUTH HAEMORRHAGE [None]
  - POSTICTAL STATE [None]
